FAERS Safety Report 5934240-7 (Version None)
Quarter: 2008Q4

REPORT INFORMATION
  Report Type: 
  Country: None (occurrence: None)
  Receive Date: 20081029
  Receipt Date: 20081016
  Transmission Date: 20090506
  Serious: Yes (Hospitalization)
  Sender: FDA-Public Use
  Company Number: JP-PURDUE-MAG_2008_0000733

PATIENT
  Age: 49 Year
  Sex: Male

DRUGS (3)
  1. OXYCODONE HCL [Suspect]
     Indication: CANCER PAIN
     Dosage: 10 MG, DAILY
     Route: 048
     Dates: start: 20080918, end: 20080922
  2. MOBIC [Suspect]
     Indication: CANCER PAIN
     Dosage: 10 MG, DAILY
     Route: 048
     Dates: start: 20080821, end: 20080922
  3. OMEPRAL                            /00661201/ [Concomitant]
     Indication: GASTRIC ULCER
     Dosage: 20 MG, DAILY
     Route: 048
     Dates: start: 20080424

REACTIONS (1)
  - LIVER DISORDER [None]
